FAERS Safety Report 10224453 (Version 1)
Quarter: 2014Q2

REPORT INFORMATION
  Report Type: Spontaneous
  Country: US (occurrence: US)
  Receive Date: 20140609
  Receipt Date: 20140609
  Transmission Date: 20141212
  Serious: No
  Sender: FDA-Public Use
  Company Number: US-BAYER-2014-085303

PATIENT
  Age: 59 Year
  Sex: Female
  Weight: 136 kg

DRUGS (2)
  1. ALEVE TABLET [Suspect]
     Route: 048
  2. LEVOTHYROXIN [Concomitant]

REACTIONS (2)
  - Pruritus [Recovered/Resolved]
  - Rash pruritic [Recovered/Resolved]
